FAERS Safety Report 8133768-1 (Version None)
Quarter: 2012Q1

REPORT INFORMATION
  Report Type: 
  Country: None (occurrence: None)
  Receive Date: 20120213
  Receipt Date: 20120213
  Transmission Date: 20120608
  Serious: No
  Sender: FDA-Public Use
  Company Number: None

PATIENT
  Age: 35 Year
  Sex: Female
  Weight: 51.255 kg

DRUGS (6)
  1. METAXALONE [Concomitant]
  2. CYMBALTA [Concomitant]
     Indication: FIBROMYALGIA
     Dosage: 60 MG
     Route: 048
  3. SEROQUEL [Concomitant]
  4. LYRICA [Suspect]
     Indication: FIBROMYALGIA
     Dosage: 75 MG
     Route: 048
  5. LYRICA [Suspect]
     Indication: DEPRESSION
     Dosage: 75 MG
     Route: 048
  6. DIAZEPAM [Concomitant]

REACTIONS (2)
  - ABDOMINAL PAIN UPPER [None]
  - ULCER [None]
